FAERS Safety Report 7204770-9 (Version None)
Quarter: 2010Q4

REPORT INFORMATION
  Report Type: 
  Country: None (occurrence: None)
  Receive Date: 20101230
  Receipt Date: 20101221
  Transmission Date: 20110411
  Serious: No
  Sender: FDA-Public Use
  Company Number: US-PFIZER INC-2010177025

PATIENT
  Sex: Female
  Weight: 68.027 kg

DRUGS (2)
  1. PRISTIQ [Suspect]
     Indication: ANTIDEPRESSANT THERAPY
     Dosage: 50 MG, 1X/DAY
     Route: 048
     Dates: start: 20101208, end: 20101201
  2. ESTRADIOL [Concomitant]
     Indication: HORMONE REPLACEMENT THERAPY
     Dosage: UNK

REACTIONS (1)
  - DYSURIA [None]
